FAERS Safety Report 7369717-3 (Version None)
Quarter: 2011Q1

REPORT INFORMATION
  Report Type: 
  Country: None (occurrence: None)
  Receive Date: 20110323
  Receipt Date: 20110310
  Transmission Date: 20110831
  Serious: Yes (Other)
  Sender: FDA-Public Use
  Company Number: PHHY2011GB19497

PATIENT
  Age: 42 Year
  Sex: Female

DRUGS (4)
  1. BETAMETHASONE [Suspect]
     Indication: PRENATAL CARE
     Dosage: 12 MG, QD
     Route: 030
  2. BETAMETHASONE [Suspect]
     Indication: MATERNAL THERAPY TO ENHANCE FOETAL LUNG MATURITY
  3. METFORMIN [Suspect]
     Indication: GESTATIONAL DIABETES
     Dosage: 500 MG, TID
  4. ISOPHANE INSULIN [Suspect]
     Indication: GESTATIONAL DIABETES
     Dosage: 8 DF, QD AT NIGHT
     Route: 058

REACTIONS (10)
  - VOMITING [None]
  - METABOLIC ACIDOSIS [None]
  - POLYHYDRAMNIOS [None]
  - DIABETIC KETOACIDOSIS [None]
  - DYSPNOEA [None]
  - KUSSMAUL RESPIRATION [None]
  - KETONURIA [None]
  - NAUSEA [None]
  - MALAISE [None]
  - DRUG EXPOSURE DURING PREGNANCY [None]
